FAERS Safety Report 13759510 (Version 1)
Quarter: 2017Q3

REPORT INFORMATION
  Report Type: Spontaneous
  Country: US (occurrence: US)
  Receive Date: 20170717
  Receipt Date: 20170717
  Transmission Date: 20171127
  Serious: Yes (Other)
  Sender: FDA-Public Use
  Company Number: US-APOTEX-2017AP014859

PATIENT
  Age: 61 Year
  Sex: Female

DRUGS (2)
  1. AMINOPHYLLINE. [Concomitant]
     Active Substance: AMINOPHYLLINE
     Indication: PROPHYLAXIS
     Dosage: 50 - 125 MG OVER 30 SECONDS
     Route: 042
  2. DIPYRIDAMOLE INJECTION USP [Suspect]
     Active Substance: DIPYRIDAMOLE
     Indication: CARDIAC PHARMACOLOGIC STRESS TEST
     Dosage: 0.56 MG/KG INFUSED OVER 4 MIN
     Route: 042

REACTIONS (3)
  - Angina pectoris [Unknown]
  - Atrial flutter [Unknown]
  - Electrocardiogram ST segment depression [Unknown]
